FAERS Safety Report 18509689 (Version 1)
Quarter: 2020Q4

REPORT INFORMATION
  Report Type: Spontaneous
  Country: US (occurrence: US)
  Receive Date: 20201117
  Receipt Date: 20201117
  Transmission Date: 20210114
  Serious: No
  Sender: FDA-Public Use
  Company Number: US-GLENMARK PHARMACEUTICALS-2020GMK049290

PATIENT
  Sex: Female

DRUGS (1)
  1. LEVOCETIRIZINE DIHYDROCHLORIDE TABLETS, 5MG [Suspect]
     Active Substance: LEVOCETIRIZINE DIHYDROCHLORIDE
     Indication: URTICARIA
     Dosage: 5 MILLIGRAM, OD
     Route: 048
     Dates: start: 20200818, end: 20200818

REACTIONS (5)
  - Burning sensation [Unknown]
  - Paraesthesia [Unknown]
  - Pain [Unknown]
  - Arthralgia [Unknown]
  - Palpitations [Unknown]

NARRATIVE: CASE EVENT DATE: 20200818
